FAERS Safety Report 7993302-3 (Version None)
Quarter: 2011Q4

REPORT INFORMATION
  Report Type: 
  Country: None (occurrence: None)
  Receive Date: 20111219
  Receipt Date: 20110824
  Transmission Date: 20120403
  Serious: No
  Sender: FDA-Public Use
  Company Number: US-ASTRAZENECA-2011SE50961

PATIENT
  Age: 83 Year
  Sex: Female
  Weight: 52.2 kg

DRUGS (2)
  1. CRESTOR [Suspect]
     Dosage: .50 MG TABLET EVERY OTHER DAY
     Route: 048
  2. CRESTOR [Suspect]
     Route: 048

REACTIONS (2)
  - OBSTRUCTION GASTRIC [None]
  - DECREASED APPETITE [None]
